FAERS Safety Report 24094987 (Version 1)
Quarter: 2024Q3

REPORT INFORMATION
  Report Type: Spontaneous
  Country: US (occurrence: US)
  Receive Date: 20240716
  Receipt Date: 20240716
  Transmission Date: 20241017
  Serious: No
  Sender: TAKEDA
  Company Number: US-TAKEDA-2024TUS071316

PATIENT
  Sex: Female

DRUGS (2)
  1. MOTEGRITY [Suspect]
     Active Substance: PRUCALOPRIDE SUCCINATE
     Indication: Irritable bowel syndrome
     Dosage: UNK
     Route: 065
     Dates: start: 20240711
  2. ADVIL [Suspect]
     Active Substance: IBUPROFEN\IBUPROFEN SODIUM
     Indication: Product used for unknown indication
     Dosage: UNK
     Route: 065

REACTIONS (3)
  - Product prescribing issue [Unknown]
  - Headache [Unknown]
  - Nausea [Unknown]
